FAERS Safety Report 6452447-X (Version None)
Quarter: 2009Q4

REPORT INFORMATION
  Report Type: 
  Country: None (occurrence: None)
  Receive Date: 20091123
  Receipt Date: 20091110
  Transmission Date: 20100525
  Serious: Yes (Other)
  Sender: FDA-Public Use
  Company Number: CO-GENENTECH-294614

PATIENT
  Sex: Female

DRUGS (1)
  1. MABTHERA [Suspect]
     Indication: MULTIPLE SCLEROSIS
     Dosage: DOSAGE FORM REPORTED: INFUSION.
     Route: 042
     Dates: start: 20090401, end: 20090401

REACTIONS (2)
  - OEDEMA [None]
  - RASH [None]
